FAERS Safety Report 7365458-7 (Version None)
Quarter: 2011Q1

REPORT INFORMATION
  Report Type: 
  Country: None (occurrence: None)
  Receive Date: 20110302
  Receipt Date: 20110302
  Transmission Date: 20110831
  Serious: Yes (Life-Threatening)
  Sender: FDA-Public Use
  Company Number: None

PATIENT
  Age: 60 Year
  Sex: Female
  Weight: 87.9978 kg

DRUGS (2)
  1. NIFEDIPINE [Suspect]
     Indication: ARTERIOSPASM CORONARY
     Dosage: 60 MG ONCE A DAY PO
     Route: 048
     Dates: start: 20101027, end: 20110228
  2. NIFEDIPINE [Suspect]
     Indication: ANGINA PECTORIS
     Dosage: 60 MG ONCE A DAY PO
     Route: 048
     Dates: start: 20101027, end: 20110228

REACTIONS (5)
  - CHEST PAIN [None]
  - CONDITION AGGRAVATED [None]
  - BACK PAIN [None]
  - PRODUCT QUALITY ISSUE [None]
  - MEDICATION RESIDUE [None]
